FAERS Safety Report 4354823-8 (Version None)
Quarter: 2004Q2

REPORT INFORMATION
  Report Type: 
  Country: None (occurrence: None)
  Receive Date: 20040507
  Receipt Date: 20040428
  Transmission Date: 20050107
  Serious: Yes (Hospitalization)
  Sender: FDA-Public Use
  Company Number: JP-ROCHE-366703

PATIENT
  Sex: Male

DRUGS (1)
  1. ROCEPHIN [Suspect]
     Indication: UPPER RESPIRATORY TRACT INFLAMMATION
     Route: 041
     Dates: start: 20040420, end: 20040422

REACTIONS (3)
  - BLISTER [None]
  - ERYTHEMA [None]
  - STOMATITIS [None]
